FAERS Safety Report 5097167-1 (Version None)
Quarter: 2006Q3

REPORT INFORMATION
  Report Type: 
  Country: None (occurrence: None)
  Receive Date: 20060901
  Receipt Date: 20060825
  Transmission Date: 20061208
  Serious: Yes (Hospitalization, Other)
  Sender: FDA-Public Use
  Company Number: 163-20785-05060330

PATIENT
  Age: 57 Year
  Sex: Male

DRUGS (3)
  1. THALOMID [Suspect]
     Indication: MULTIPLE MYELOMA
     Dosage: 200 + 100  MG, DAILY, ORAL - SEE IMAGE
     Route: 048
     Dates: start: 20050525, end: 20050101
  2. THALOMID [Suspect]
     Indication: MULTIPLE MYELOMA
     Dosage: 200 + 100  MG, DAILY, ORAL - SEE IMAGE
     Route: 048
     Dates: start: 20050928
  3. ALLOPURINOL [Suspect]
     Indication: DRUG USE FOR UNKNOWN INDICATION

REACTIONS (6)
  - DERMATITIS EXFOLIATIVE [None]
  - DIALYSIS [None]
  - LIVER DISORDER [None]
  - NEUROPATHY PERIPHERAL [None]
  - PYREXIA [None]
  - RENAL FAILURE [None]
